FAERS Safety Report 5566574-2 (Version None)
Quarter: 2007Q4

REPORT INFORMATION
  Report Type: 
  Country: None (occurrence: None)
  Receive Date: 20071219
  Receipt Date: 20071212
  Transmission Date: 20080405
  Serious: Yes (Other)
  Sender: FDA-Public Use
  Company Number: CO-ROCHE-536644

PATIENT
  Sex: Female

DRUGS (1)
  1. BONIVA [Suspect]
     Indication: OSTEOPOROSIS
     Dosage: DOSAGE REGIMEN EVERY 3 MONTHS
     Route: 042
     Dates: start: 20071211

REACTIONS (2)
  - ANXIETY [None]
  - DYSPNOEA [None]
